FAERS Safety Report 20863046 (Version 7)
Quarter: 2022Q3

REPORT INFORMATION
  Report Type: Spontaneous
  Country: BR (occurrence: BR)
  Receive Date: 20220523
  Receipt Date: 20220727
  Transmission Date: 20221026
  Serious: Yes (Death)
  Sender: FDA-Public Use
  Company Number: BR-NOVARTISPH-NVSC2022BR117839

PATIENT
  Age: 16 Month
  Sex: Female
  Weight: 7.2 kg

DRUGS (2)
  1. ZOLGENSMA [Suspect]
     Active Substance: ONASEMNOGENE ABEPARVOVEC-XIOI
     Indication: Spinal muscular atrophy
     Dosage: 41.3 ML, ONCE/SINGLE (SUSPENSION)
     Route: 042
     Dates: start: 20220505, end: 20220505
  2. PREDNISOLONE [Concomitant]
     Active Substance: PREDNISOLONE
     Indication: Product used for unknown indication
     Dosage: 1 MG, QD (1 MG PER KG)
     Route: 048
     Dates: start: 20220504

REACTIONS (13)
  - Cardiac arrest [Fatal]
  - Bradycardia [Fatal]
  - Disease progression [Fatal]
  - Respiratory failure [Fatal]
  - Atelectasis [Fatal]
  - Eye movement disorder [Fatal]
  - Eye colour change [Fatal]
  - Immune system disorder [Fatal]
  - Transaminases increased [Unknown]
  - Bradyarrhythmia [Not Recovered/Not Resolved]
  - Hepatic enzyme abnormal [Unknown]
  - Aspartate aminotransferase increased [Not Recovered/Not Resolved]
  - Alanine aminotransferase increased [Not Recovered/Not Resolved]

NARRATIVE: CASE EVENT DATE: 20220512
